FAERS Safety Report 6531226-9 (Version None)
Quarter: 2010Q1

REPORT INFORMATION
  Report Type: 
  Country: None (occurrence: None)
  Receive Date: 20100108
  Receipt Date: 20100105
  Transmission Date: 20100710
  Serious: Yes (Life-Threatening, Hospitalization, Other)
  Sender: FDA-Public Use
  Company Number: PHHY2009ZA59008

PATIENT
  Age: 14 Month
  Sex: Female
  Weight: 9 kg

DRUGS (6)
  1. VOLTAREN [Suspect]
     Indication: PYREXIA
     Dosage: 12.5 MG
     Dates: start: 20091225
  2. AUGMENTIN [Concomitant]
     Dosage: UNK
     Dates: start: 20091223, end: 20091226
  3. ANTIBIOTICS [Concomitant]
     Dosage: UNK
     Route: 042
     Dates: start: 20091226, end: 20091228
  4. CIPROFLOXACIN [Concomitant]
     Dosage: UNK
     Dates: start: 20091229, end: 20100104
  5. PURBAC [Concomitant]
     Dosage: UNK
     Dates: start: 20100104
  6. PARACETAMOL [Concomitant]
     Indication: PYREXIA
     Dosage: UNK
     Dates: start: 20091223

REACTIONS (8)
  - APPARENT DEATH [None]
  - CYSTITIS [None]
  - HYPERHIDROSIS [None]
  - MUSCULOSKELETAL STIFFNESS [None]
  - PYREXIA [None]
  - SHOCK [None]
  - SKIN DISCOLOURATION [None]
  - SYNCOPE [None]
